FAERS Safety Report 16651646 (Version 5)
Quarter: 2019Q4

REPORT INFORMATION
  Report Type: Report from Study
  Country: SG (occurrence: SG)
  Receive Date: 20190731
  Receipt Date: 20191224
  Transmission Date: 20200122
  Serious: Yes (Hospitalization)
  Sender: FDA-Public Use
  Company Number: SG-PFIZER INC-2019313516

PATIENT
  Age: 63 Year
  Sex: Female
  Weight: 61.8 kg

DRUGS (1)
  1. LORLATINIB [Suspect]
     Active Substance: LORLATINIB
     Indication: NON-SMALL CELL LUNG CANCER
     Dosage: 100 MG, SINGLE LEAD-IN DOSE ON DAY-7, THEN ONCE DAILY FOR 21-DAY CYCLE
     Route: 048
     Dates: start: 20151117, end: 20190718

REACTIONS (1)
  - Pericardial effusion [Not Recovered/Not Resolved]

NARRATIVE: CASE EVENT DATE: 20190717
